FAERS Safety Report 18640878 (Version 1)
Quarter: 2020Q4

REPORT INFORMATION
  Report Type: Spontaneous
  Country: US (occurrence: US)
  Receive Date: 20201221
  Receipt Date: 20201221
  Transmission Date: 20210114
  Serious: Yes (Hospitalization)
  Sender: FDA-Public Use
  Company Number: US-SA-2020SA362330

PATIENT

DRUGS (1)
  1. DUPIXENT [Suspect]
     Active Substance: DUPILUMAB
     Indication: DERMATITIS ALLERGIC
     Dosage: 300 MG, OTHER
     Route: 058

REACTIONS (4)
  - Pain [Unknown]
  - Eye pruritus [Unknown]
  - Conjunctivitis [Unknown]
  - Groin infection [Unknown]
